FAERS Safety Report 21535840 (Version 2)
Quarter: 2023Q1

REPORT INFORMATION
  Report Type: Report from Study
  Country: US (occurrence: US)
  Receive Date: 20221101
  Receipt Date: 20230316
  Transmission Date: 20230417
  Serious: Yes (Hospitalization)
  Sender: FDA-Public Use
  Company Number: US-BAYER-2022A148573

PATIENT
  Age: 63 Year
  Sex: Female

DRUGS (35)
  1. ADEMPAS [Suspect]
     Active Substance: RIOCIGUAT
     Indication: Pulmonary arterial hypertension
     Dosage: 0.5 MG, TID
     Dates: start: 20221001, end: 20221019
  2. ADEMPAS [Suspect]
     Active Substance: RIOCIGUAT
     Indication: Pulmonary arterial hypertension
     Dosage: 1 MG, TID
     Dates: start: 20221020
  3. ACETAMINOPHEN [Concomitant]
     Active Substance: ACETAMINOPHEN
  4. BISACODYL [Concomitant]
     Active Substance: BISACODYL
  5. BISOPROLOL FUMARATE\HYDROCHLOROTHIAZIDE [Concomitant]
     Active Substance: BISOPROLOL FUMARATE\HYDROCHLOROTHIAZIDE
  6. CETIRIZINE [Concomitant]
     Active Substance: CETIRIZINE HYDROCHLORIDE
  7. COLACE [Concomitant]
     Active Substance: DOCUSATE SODIUM
  8. FUROSEMIDE [Concomitant]
     Active Substance: FUROSEMIDE
  9. GABAPENTIN [Concomitant]
     Active Substance: GABAPENTIN
  10. GLUCAGON [Concomitant]
     Active Substance: GLUCAGON
  11. GUAIFENESIN [Concomitant]
     Active Substance: GUAIFENESIN
  12. HEPARIN [Concomitant]
     Active Substance: HEPARIN SODIUM
  13. HYDROXYCHLOROQUINE [Concomitant]
     Active Substance: HYDROXYCHLOROQUINE
  14. LEVOTHYROXINE [Concomitant]
     Active Substance: LEVOTHYROXINE
  15. INSULIN NOS [Concomitant]
     Active Substance: INSULIN NOS
  16. MAALOX PLUS [ALUMINIUM HYDROXIDE;DIMETICONE;MAGNESIUM HYDROXIDE] [Concomitant]
  17. MACITENTAN [Concomitant]
     Active Substance: MACITENTAN
  18. METFORMIN [Concomitant]
     Active Substance: METFORMIN HYDROCHLORIDE
  19. METOLAZONE [Concomitant]
     Active Substance: METOLAZONE
  20. MIRALAX [Concomitant]
     Active Substance: POLYETHYLENE GLYCOL 3350
  21. NOVOLOG [Concomitant]
     Active Substance: INSULIN ASPART
  22. OLMESARTAN [Concomitant]
     Active Substance: OLMESARTAN
  23. ONDANSETRON [Concomitant]
     Active Substance: ONDANSETRON
  24. PFIZER-BIONTECH COVID-19 VACCINE [Concomitant]
     Active Substance: TOZINAMERAN
  25. POTASSIUM CHLORIDE [Concomitant]
     Active Substance: POTASSIUM CHLORIDE
  26. OMEPRAZOLE [Concomitant]
     Active Substance: OMEPRAZOLE
  27. RAMELTEON [Concomitant]
     Active Substance: RAMELTEON
  28. SELEXIPAG [Concomitant]
     Active Substance: SELEXIPAG
  29. SILDENAFIL [Concomitant]
     Active Substance: SILDENAFIL
  30. SIMETHICONE (DIMETHICONE) [Concomitant]
     Active Substance: DIMETHICONE
  31. SPIRONOLACTONE [Concomitant]
     Active Substance: SPIRONOLACTONE
  32. TRAMADOL [Concomitant]
     Active Substance: TRAMADOL
  33. VALACYCLOVIR HYDROCHLORIDE [Concomitant]
     Active Substance: VALACYCLOVIR HYDROCHLORIDE
  34. VELETRI [Concomitant]
     Active Substance: EPOPROSTENOL
  35. XANAX [Concomitant]
     Active Substance: ALPRAZOLAM

REACTIONS (2)
  - Hypotension [Recovering/Resolving]
  - Presyncope [Recovering/Resolving]

NARRATIVE: CASE EVENT DATE: 20221021
